FAERS Safety Report 4569091-1 (Version None)
Quarter: 2005Q1

REPORT INFORMATION
  Report Type: 
  Country: None (occurrence: None)
  Receive Date: 20050202
  Receipt Date: 20050125
  Transmission Date: 20050727
  Serious: Yes (Death)
  Sender: FDA-Public Use
  Company Number: 04-11-1634

PATIENT
  Age: 50 Year
  Sex: Male
  Weight: 105.2345 kg

DRUGS (6)
  1. CLOZAPINE [Suspect]
     Indication: PARANOIA
     Dosage: 600MG QD ORAL
     Route: 048
     Dates: start: 20020901, end: 20041101
  2. CLOZAPINE [Suspect]
     Indication: SCHIZOPHRENIA
     Dosage: 600MG QD ORAL
     Route: 048
     Dates: start: 20020901, end: 20041101
  3. COLACE [Concomitant]
  4. ALTACE [Concomitant]
  5. LASIX [Concomitant]
  6. LANOXIN [Concomitant]

REACTIONS (2)
  - CARDIAC DISORDER [None]
  - EMPHYSEMA [None]
